FAERS Safety Report 7539704-0 (Version None)
Quarter: 2011Q2

REPORT INFORMATION
  Report Type: 
  Country: None (occurrence: None)
  Receive Date: 20110610
  Receipt Date: 20110607
  Transmission Date: 20111010
  Serious: Yes (Other)
  Sender: FDA-Public Use
  Company Number: US-PFIZER INC-2011124939

PATIENT

DRUGS (1)
  1. LYRICA [Suspect]

REACTIONS (1)
  - GASTRIC BYPASS [None]
